FAERS Safety Report 11566518 (Version 1)
Quarter: 2015Q3

REPORT INFORMATION
  Report Type: Spontaneous
  Country: US (occurrence: US)
  Receive Date: 20150916
  Receipt Date: 20150916
  Transmission Date: 20151125
  Serious: No
  Sender: FDA-Public Use
  Company Number: US-ELI_LILLY_AND_COMPANY-US200906003154

PATIENT
  Age: 77 Year
  Sex: Male

DRUGS (2)
  1. FORTEO [Suspect]
     Active Substance: TERIPARATIDE
     Dosage: UNK, UNK
     Dates: start: 2009, end: 20090516
  2. FORTEO [Suspect]
     Active Substance: TERIPARATIDE
     Dates: start: 20090608

REACTIONS (12)
  - Chest discomfort [Recovered/Resolved]
  - Tremor [Unknown]
  - Abdominal discomfort [Unknown]
  - Muscle spasms [Unknown]
  - Muscle fatigue [Unknown]
  - Asthenia [Unknown]
  - Feeling cold [Unknown]
  - Nausea [Unknown]
  - Pruritus [Recovered/Resolved]
  - Heart rate increased [Recovered/Resolved]
  - Atrial fibrillation [Recovered/Resolved]
  - Muscle tightness [Recovered/Resolved]

NARRATIVE: CASE EVENT DATE: 200906
